FAERS Safety Report 12242166 (Version 2)
Quarter: 2016Q2

REPORT INFORMATION
  Report Type: Spontaneous
  Country: JP (occurrence: JP)
  Receive Date: 20160406
  Receipt Date: 20160527
  Transmission Date: 20160815
  Serious: Yes (Other)
  Sender: FDA-Public Use
  Company Number: JP-PFIZER INC-2016182536

PATIENT
  Age: 79 Year
  Sex: Male
  Weight: 59.6 kg

DRUGS (4)
  1. INLYTA [Suspect]
     Active Substance: AXITINIB
     Indication: RENAL CELL CARCINOMA
     Dosage: 5 MG, 2X/DAY
     Route: 048
     Dates: start: 20150804, end: 20150907
  2. INLYTA [Suspect]
     Active Substance: AXITINIB
     Dosage: 5 MG, 1X/DAY
     Route: 048
     Dates: start: 20151124, end: 20160202
  3. INLYTA [Suspect]
     Active Substance: AXITINIB
     Dosage: 5 MG, 1X/DAY
     Route: 048
     Dates: start: 20150908, end: 20151104
  4. INLYTA [Suspect]
     Active Substance: AXITINIB
     Dosage: 3 MG, 1X/DAY
     Route: 048
     Dates: start: 20160301, end: 20160305

REACTIONS (7)
  - Renal impairment [Recovered/Resolved with Sequelae]
  - Hypertension [Unknown]
  - Renal cell carcinoma [Unknown]
  - Pyrexia [Unknown]
  - Diarrhoea [Unknown]
  - Productive cough [Unknown]
  - Disease progression [Unknown]

NARRATIVE: CASE EVENT DATE: 20150818
